FAERS Safety Report 7862286-0 (Version None)
Quarter: 2011Q4

REPORT INFORMATION
  Report Type: 
  Country: None (occurrence: None)
  Receive Date: 20111027
  Receipt Date: 20101104
  Transmission Date: 20120403
  Serious: No
  Sender: FDA-Public Use
  Company Number: US-AMGEN-USASP2010003827

PATIENT
  Sex: Female

DRUGS (20)
  1. VITAMIN D [Concomitant]
     Dosage: 50000 IU, UNK
  2. CALCIUM CARBONATE [Concomitant]
     Dosage: 500 MG, UNK
  3. QVAR 40 [Concomitant]
  4. AZATHIOPRINE [Concomitant]
     Dosage: 50 MG, UNK
  5. ZANTAC                             /00550801/ [Concomitant]
     Dosage: 30 MG, UNK
  6. TUSSIONEX                          /00004701/ [Concomitant]
  7. DEXLANSOPRAZOLE [Concomitant]
     Dosage: 30 MG, UNK
  8. VITAMIN C                          /00008001/ [Concomitant]
     Dosage: 100 MG, UNK
     Route: 048
  9. NIFEDIPINE [Concomitant]
     Dosage: 60 MG, UNK
  10. GLUCOSAMINE + CHONDROITIN [Concomitant]
  11. LYSINE [Concomitant]
     Dosage: 500 UNK, UNK
  12. ENBREL [Suspect]
     Indication: PRODUCT USED FOR UNKNOWN INDICATION
     Dosage: 50 MG, UNK
     Route: 058
  13. LOVASTATIN [Concomitant]
     Dosage: 20 MG, UNK
  14. NASAL                              /00070002/ [Concomitant]
     Dosage: 0.02 %, UNK
     Route: 045
  15. URSO FORTE [Concomitant]
     Dosage: 500 MG, UNK
  16. MULTIVITAMIN                       /00097801/ [Concomitant]
  17. SUCRAL [Concomitant]
     Dosage: 1 UNK, UNK
  18. ASPIRIN [Concomitant]
  19. PREDNISONE [Concomitant]
     Dosage: 10 MG, UNK
  20. SYNTHROID [Concomitant]

REACTIONS (4)
  - INJECTION SITE ERYTHEMA [None]
  - INJECTION SITE SWELLING [None]
  - INJECTION SITE PRURITUS [None]
  - INJECTION SITE PAIN [None]
